FAERS Safety Report 4306398-7 (Version None)
Quarter: 2004Q1

REPORT INFORMATION
  Report Type: 
  Country: None (occurrence: None)
  Receive Date: 20040225
  Receipt Date: 20030603
  Transmission Date: 20041129
  Serious: No
  Sender: FDA-Public Use
  Company Number: US-BRISTOL-MYERS SQUIBB COMPANY-12317012

PATIENT
  Age: 68 Year
  Sex: Male
  Weight: 91 kg

DRUGS (1)
  1. EXCEDRIN ES TABS [Suspect]
     Indication: PROPHYLAXIS
     Route: 048
     Dates: start: 20030602

REACTIONS (1)
  - DYSPEPSIA [None]
